FAERS Safety Report 5545317-2 (Version None)
Quarter: 2007Q4

REPORT INFORMATION
  Report Type: 
  Country: None (occurrence: None)
  Receive Date: 20071205
  Receipt Date: 20071205
  Transmission Date: 20080405
  Serious: Yes (Hospitalization)
  Sender: FDA-Public Use
  Company Number: None

PATIENT
  Age: 65 Year
  Sex: Female

DRUGS (10)
  1. RITUXAN [Suspect]
     Indication: RHEUMATOID ARTHRITIS
     Dosage: 100MG TEST DOSE ONCE IV DRIP
     Route: 041
     Dates: start: 20070725, end: 20070725
  2. RITUXAN [Suspect]
     Indication: RHEUMATOID ARTHRITIS
     Dosage: APPROX 50MG FROM IV BAG ONCE IV DRIP
     Route: 041
     Dates: start: 20070725, end: 20070725
  3. ACETAMINOPHEN [Concomitant]
  4. METHYLPREDNISOLONE [Concomitant]
  5. ENALAPRIL [Concomitant]
  6. METHOTREXATE [Concomitant]
  7. ASPIRIN [Concomitant]
  8. HYDROCODONE BITARTRATE [Concomitant]
  9. INSULIN [Concomitant]
  10. NEXIUM [Concomitant]

REACTIONS (4)
  - ABDOMINAL DISCOMFORT [None]
  - BLOOD PRESSURE DECREASED [None]
  - DYSPNOEA [None]
  - ERYTHEMA [None]
